FAERS Safety Report 7909396-7 (Version None)
Quarter: 2011Q4

REPORT INFORMATION
  Report Type: 
  Country: None (occurrence: None)
  Receive Date: 20111111
  Receipt Date: 20111108
  Transmission Date: 20120403
  Serious: Yes (Death, Life-Threatening, Hospitalization, Other)
  Sender: FDA-Public Use
  Company Number: JP-CEPHALON-2011001752

PATIENT
  Sex: Male
  Weight: 47 kg

DRUGS (19)
  1. RITUXIMAB [Suspect]
     Indication: MANTLE CELL LYMPHOMA
     Route: 042
     Dates: start: 20110118, end: 20110315
  2. HEPARIN SODIUM [Concomitant]
  3. LOXOPROFEN SODIUM [Concomitant]
     Dates: start: 20110225, end: 20110301
  4. BICALUTAMIDE [Concomitant]
     Dates: end: 20110415
  5. FUROSEMIDE [Concomitant]
     Dates: end: 20110226
  6. DEXAMETHASONE SODIUM PHOSPHATE [Concomitant]
  7. BENZBROMARONE [Concomitant]
     Dates: start: 20110124, end: 20110127
  8. RAMOSETRON HYDROCHLORIDE [Concomitant]
     Dates: start: 20110119, end: 20110317
  9. MIDAZOLAM [Concomitant]
     Dates: start: 20110416, end: 20110420
  10. BENDAMUSTINE HCL [Suspect]
     Route: 042
     Dates: start: 20110217, end: 20110218
  11. RAMOSETRON HYDROCHLORIDE [Concomitant]
  12. DEXTROMETHORPHAN HYDROBROMIDE [Concomitant]
     Dates: start: 20110402, end: 20110415
  13. FLAVINE ADENINE DINUCLEOTIDE DISODIUM [Concomitant]
     Dates: end: 20110415
  14. HYDROCORTISONE SODIUM SUCCINATE [Concomitant]
     Dates: start: 20110118, end: 20110315
  15. BENDAMUSTINE HCL [Suspect]
     Indication: MANTLE CELL LYMPHOMA
     Route: 042
     Dates: start: 20110119, end: 20110120
  16. BENDAMUSTINE HCL [Suspect]
     Route: 042
     Dates: start: 20110316, end: 20110317
  17. TAMSULOSIN HYDROCHLORIDE [Concomitant]
     Dates: end: 20110415
  18. DEXAMETHASONE [Concomitant]
     Dates: start: 20110119, end: 20110317
  19. PREDNISOLONE ACETATE [Concomitant]
     Dates: start: 20110402, end: 20110417

REACTIONS (17)
  - PERIARTHRITIS [None]
  - DIARRHOEA [None]
  - PYREXIA [None]
  - LYMPHOCYTE COUNT DECREASED [None]
  - ECZEMA [None]
  - ANAEMIA [None]
  - FUNGAL INFECTION [None]
  - GAMMA-GLUTAMYLTRANSFERASE INCREASED [None]
  - NEUTROPHIL COUNT DECREASED [None]
  - PNEUMOCYSTIS JIROVECI PNEUMONIA [None]
  - CARDIAC FAILURE [None]
  - STAPHYLOCOCCAL INFECTION [None]
  - STOMATITIS [None]
  - BRONCHITIS [None]
  - COUGH [None]
  - DISSEMINATED INTRAVASCULAR COAGULATION [None]
  - BLOOD URIC ACID INCREASED [None]
